FAERS Safety Report 9182504 (Version 3)
Quarter: 2014Q4

REPORT INFORMATION
  Report Type: Spontaneous
  Country: US (occurrence: US)
  Receive Date: 20130322
  Receipt Date: 20141024
  Transmission Date: 20150529
  Serious: No
  Sender: FDA-Public Use
  Company Number: US-009507513-1303USA010386

PATIENT
  Sex: Male
  Weight: 103.4 kg

DRUGS (1)
  1. PROPECIA [Suspect]
     Active Substance: FINASTERIDE
     Indication: ANDROGENETIC ALOPECIA
     Dosage: 1 MG, QD
     Route: 048
     Dates: start: 20020122, end: 20110927

REACTIONS (12)
  - Erectile dysfunction [Unknown]
  - Depression [Unknown]
  - Sexual dysfunction [Not Recovered/Not Resolved]
  - Road traffic accident [Unknown]
  - Cognitive disorder [Not Recovered/Not Resolved]
  - Stress [Unknown]
  - Joint injury [Unknown]
  - Anxiety [Unknown]
  - Libido decreased [Unknown]
  - Back injury [Unknown]
  - Penile size reduced [Unknown]
  - Testicular swelling [Unknown]

NARRATIVE: CASE EVENT DATE: 2008
